FAERS Safety Report 21637254 (Version 1)
Quarter: 2022Q4

REPORT INFORMATION
  Report Type: Report from Study
  Country: US (occurrence: US)
  Receive Date: 20221124
  Receipt Date: 20221124
  Transmission Date: 20230113
  Serious: No
  Sender: FDA-Public Use
  Company Number: US-ABBVIE-22K-163-4502746-00

PATIENT
  Sex: Female

DRUGS (1)
  1. IMBRUVICA [Suspect]
     Active Substance: IBRUTINIB
     Indication: Waldenstrom^s macroglobulinaemia
     Route: 048
     Dates: start: 20190703

REACTIONS (14)
  - Blood pressure decreased [Recovered/Resolved]
  - Dyspnoea exertional [Unknown]
  - Irritable bowel syndrome [Unknown]
  - Heart rate increased [Recovered/Resolved]
  - Blood immunoglobulin M abnormal [Unknown]
  - Asthenia [Recovering/Resolving]
  - Muscle tightness [Unknown]
  - Myalgia [Unknown]
  - Arthralgia [Unknown]
  - Blood immunoglobulin A decreased [Unknown]
  - Musculoskeletal stiffness [Unknown]
  - Blood immunoglobulin G decreased [Unknown]
  - Joint stiffness [Unknown]
  - Nasopharyngitis [Unknown]
